FAERS Safety Report 5259201-5 (Version None)
Quarter: 2007Q1

REPORT INFORMATION
  Report Type: 
  Country: None (occurrence: None)
  Receive Date: 20070305
  Receipt Date: 20070220
  Transmission Date: 20070707
  Serious: Yes (Hospitalization, Other)
  Sender: FDA-Public Use
  Company Number: OSCN-PR-0412S-0355

PATIENT
  Age: 61 Year
  Sex: Female

DRUGS (3)
  1. OMNISCAN [Suspect]
     Indication: PERIPHERAL VASCULAR DISORDER
     Dosage: 40 ML, SINGLE DOSE, I.V.
     Route: 042
     Dates: start: 20040909, end: 20040909
  2. EPOGEN [Concomitant]
  3. VIOXX [Concomitant]

REACTIONS (2)
  - CEREBROVASCULAR ACCIDENT [None]
  - NEPHROGENIC FIBROSING DERMOPATHY [None]
